FAERS Safety Report 12907827 (Version 1)
Quarter: 2016Q4

REPORT INFORMATION
  Report Type: Spontaneous
  Country: US (occurrence: US)
  Receive Date: 20161102
  Receipt Date: 20161102
  Transmission Date: 20170207
  Serious: Yes (Other)
  Sender: FDA-Public Use
  Company Number: None

PATIENT
  Age: 69 Year
  Sex: Male
  Weight: 81.9 kg

DRUGS (11)
  1. LAMOTRIGINE. [Concomitant]
     Active Substance: LAMOTRIGINE
  2. CPAP [Concomitant]
     Active Substance: DEVICE
  3. VITAMIN B12 [Concomitant]
     Active Substance: CYANOCOBALAMIN
  4. ASPIRIN. [Concomitant]
     Active Substance: ASPIRIN
  5. COZAAR [Concomitant]
     Active Substance: LOSARTAN POTASSIUM
  6. KRILL OIL (FISH OIL) [Concomitant]
  7. VITAMIN D3 [Concomitant]
     Active Substance: CHOLECALCIFEROL
  8. PIOGLITAZONE (ACTOS) [Concomitant]
  9. BUPROPION. [Suspect]
     Active Substance: BUPROPION
     Indication: MAJOR DEPRESSION
     Dosage: ?          QUANTITY:1 TABLET(S);?
     Route: 048
  10. BUPROPION. [Concomitant]
     Active Substance: BUPROPION
  11. ATORVASTATIN [Concomitant]
     Active Substance: ATORVASTATIN

REACTIONS (4)
  - Hallucinations, mixed [None]
  - Product quality issue [None]
  - Psychotic disorder [None]
  - Product physical issue [None]

NARRATIVE: CASE EVENT DATE: 20161017
